FAERS Safety Report 14405196 (Version 6)
Quarter: 2018Q3

REPORT INFORMATION
  Report Type: Report from Study
  Country: None (occurrence: BE)
  Receive Date: 20180118
  Receipt Date: 20180823
  Transmission Date: 20181010
  Serious: Yes (Hospitalization, Other)
  Sender: FDA-Public Use
  Company Number: BE-ABBVIE-18K-013-2226854-00

PATIENT
  Sex: Male

DRUGS (15)
  1. DUODOPA [Suspect]
     Active Substance: CARBIDOPA\LEVODOPA
     Dosage: MD=3.5ML??CD=2.3ML/HR DURING 16HRS ??ED=1.5ML
     Route: 050
     Dates: start: 20171204
  2. DUODOPA [Suspect]
     Active Substance: CARBIDOPA\LEVODOPA
     Dosage: MD=3.5ML??CD=2.5ML/HR DURING 16HRS ??ED=1.5ML
     Route: 050
     Dates: start: 20180117, end: 20180122
  3. DUODOPA [Suspect]
     Active Substance: CARBIDOPA\LEVODOPA
     Dosage: MD=3.5ML?CD=2.8ML/HR DURING 16HRS?ED=1.5ML
     Route: 050
     Dates: start: 20180410
  4. DUODOPA [Suspect]
     Active Substance: CARBIDOPA\LEVODOPA
     Indication: PARKINSON^S DISEASE
     Route: 050
     Dates: start: 20100719, end: 20100723
  5. DUODOPA [Suspect]
     Active Substance: CARBIDOPA\LEVODOPA
     Dosage: DOSES CONTINUOUSLY MONITORED AND ADAPTED
     Route: 050
     Dates: start: 20100724, end: 20171204
  6. DUODOPA [Suspect]
     Active Substance: CARBIDOPA\LEVODOPA
     Dosage: MD=3.5ML?CD=2.8ML/HR DURING 16HRS ?ED=1.5ML
     Route: 050
     Dates: start: 20180122, end: 20180410
  7. AZILECT [Concomitant]
     Active Substance: RASAGILINE MESYLATE
     Indication: PRODUCT USED FOR UNKNOWN INDICATION
     Route: 065
  8. DUODOPA [Suspect]
     Active Substance: CARBIDOPA\LEVODOPA
     Dosage: MD=3.6ML??CD=2.5ML/HR DURING 16HRS ??ED=1ML
     Route: 050
     Dates: start: 20100723, end: 20100724
  9. ESCITALOPRAM [Concomitant]
     Active Substance: ESCITALOPRAM OXALATE
     Indication: PRODUCT USED FOR UNKNOWN INDICATION
  10. FLUNITRAZEPAM [Concomitant]
     Active Substance: FLUNITRAZEPAM
     Indication: PRODUCT USED FOR UNKNOWN INDICATION
  11. DUODOPA [Suspect]
     Active Substance: CARBIDOPA\LEVODOPA
     Dosage: # MD= 3.5ML?# CD= 1.7ML/HR DURING 16HRS?# ED= 1.5ML
     Route: 050
     Dates: start: 20180817
  12. AMANTAN [Concomitant]
     Indication: PRODUCT USED FOR UNKNOWN INDICATION
  13. METFORMINE [Concomitant]
     Active Substance: METFORMIN HYDROCHLORIDE
     Indication: PRODUCT USED FOR UNKNOWN INDICATION
  14. DUODOPA [Suspect]
     Active Substance: CARBIDOPA\LEVODOPA
     Dosage: # MD= 3.5ML # CD= 1.6ML/HR DURING 16HRS # ED= 1.5ML
     Route: 050
     Dates: start: 20180817
  15. DUODOPA [Suspect]
     Active Substance: CARBIDOPA\LEVODOPA
     Route: 050

REACTIONS (5)
  - Transient ischaemic attack [Unknown]
  - Stoma site hypergranulation [Not Recovered/Not Resolved]
  - Asthenia [Recovered/Resolved]
  - Carotid artery stenosis [Unknown]
  - Dyskinesia [Not Recovered/Not Resolved]
